FAERS Safety Report 7974029-0 (Version None)
Quarter: 2011Q4

REPORT INFORMATION
  Report Type: 
  Country: None (occurrence: None)
  Receive Date: 20111213
  Receipt Date: 20111206
  Transmission Date: 20120403
  Serious: Yes (Hospitalization, Disabling)
  Sender: FDA-Public Use
  Company Number: JP-GLAXOSMITHKLINE-B0753848A

PATIENT
  Sex: Female
  Weight: 152 kg

DRUGS (10)
  1. KYTRIL [Concomitant]
     Dosage: 3MG PER DAY
     Dates: start: 20110905, end: 20110909
  2. DECADRON [Concomitant]
     Route: 042
     Dates: start: 20110905, end: 20110909
  3. ACETAMINOPHEN [Concomitant]
     Indication: PYREXIA
     Dosage: 1500MG PER DAY
     Dates: start: 20110805
  4. PACLITAXEL [Concomitant]
  5. CARBOPLATIN [Concomitant]
  6. WARFARIN SODIUM [Concomitant]
     Indication: DEEP VEIN THROMBOSIS
     Route: 048
     Dates: start: 20110827
  7. NEUTROGIN [Suspect]
     Indication: NEUTROPHIL COUNT DECREASED
     Route: 058
     Dates: start: 20110914, end: 20110920
  8. CHINESE MEDICINE [Concomitant]
     Indication: CONSTIPATION
     Dosage: 7.5G PER DAY
     Route: 048
     Dates: start: 20110807
  9. HYCAMTIN [Suspect]
     Indication: OVARIAN CANCER
     Dosage: 1.5MGM2 PER DAY
     Route: 042
     Dates: start: 20110905, end: 20110909
  10. LEVOFLOXACIN [Concomitant]
     Indication: NEUTROPHIL COUNT DECREASED
     Dosage: 500MG PER DAY
     Route: 048
     Dates: start: 20110917, end: 20110920

REACTIONS (3)
  - THROMBOCYTOSIS [None]
  - WHITE BLOOD CELL COUNT DECREASED [None]
  - PLATELET COUNT INCREASED [None]
